FAERS Safety Report 15368000 (Version 9)
Quarter: 2019Q2

REPORT INFORMATION
  Report Type: Spontaneous
  Country: IE (occurrence: IE)
  Receive Date: 20180910
  Receipt Date: 20190611
  Transmission Date: 20190711
  Serious: Yes (Hospitalization, Other)
  Sender: FDA-Public Use
  Company Number: IE-CLOVIS ONCOLOGY-CLO-2018-001218

PATIENT

DRUGS (16)
  1. SPIRIVA [Concomitant]
     Active Substance: TIOTROPIUM BROMIDE MONOHYDRATE
     Indication: CHRONIC OBSTRUCTIVE PULMONARY DISEASE
     Dosage: 18 MG, QD
     Route: 055
  2. VENTOLIN [Concomitant]
     Active Substance: ALBUTEROL SULFATE
     Indication: CHRONIC OBSTRUCTIVE PULMONARY DISEASE
     Dosage: 2 PUFFS, BID
     Route: 055
  3. RUBRACA [Suspect]
     Active Substance: RUCAPARIB CAMSYLATE
     Dosage: 600 MG, BID
     Dates: start: 20190426
  4. ESOMEPRAZOLE. [Concomitant]
     Active Substance: ESOMEPRAZOLE MAGNESIUM
     Indication: GASTROOESOPHAGEAL REFLUX DISEASE
     Dosage: 40 MG, QD
  5. LEVOFLOXACIN. [Suspect]
     Active Substance: LEVOFLOXACIN
     Indication: LUNG INFECTION
     Dosage: 500 MG, BID
     Route: 048
     Dates: start: 2018, end: 2018
  6. LANSOPRAZOLE. [Concomitant]
     Active Substance: LANSOPRAZOLE
     Dosage: 40 MG, QD
     Route: 048
  7. RUBRACA [Suspect]
     Active Substance: RUCAPARIB CAMSYLATE
     Indication: OVARIAN CANCER RECURRENT
     Dosage: 600 MG, BID
     Dates: start: 20180718, end: 20180831
  8. RUBRACA [Suspect]
     Active Substance: RUCAPARIB CAMSYLATE
     Dosage: 600 MG, BID
     Dates: start: 20190307, end: 20190318
  9. ESCITALOPRAM [Concomitant]
     Active Substance: ESCITALOPRAM OXALATE
     Indication: DEPRESSION
     Dosage: 15 MG, QD
     Route: 048
  10. LANSOPRAZOLE. [Concomitant]
     Active Substance: LANSOPRAZOLE
     Indication: GASTROOESOPHAGEAL REFLUX DISEASE
     Dosage: 30 MG, QD
     Route: 048
  11. ZOPICLONE [Concomitant]
     Active Substance: ZOPICLONE
     Dosage: 7.5 MG, HS
  12. RUBRACA [Suspect]
     Active Substance: RUCAPARIB CAMSYLATE
     Indication: GENE MUTATION
     Dosage: 600 MG, BID
     Dates: start: 20180914, end: 20181026
  13. RUBRACA [Suspect]
     Active Substance: RUCAPARIB CAMSYLATE
     Indication: OVARIAN CANCER
     Dosage: 600 MG, BID
     Dates: start: 20181107, end: 20181114
  14. ZOPICLONE [Concomitant]
     Active Substance: ZOPICLONE
     Indication: INSOMNIA
     Dosage: 75 MG, HS
  15. OXYBUTYNIN. [Concomitant]
     Active Substance: OXYBUTYNIN CHLORIDE
     Indication: POLLAKIURIA
     Dosage: 5 MG, QD
     Route: 048
  16. ESOMEPRAZOLE. [Concomitant]
     Active Substance: ESOMEPRAZOLE MAGNESIUM
     Dosage: 30 MG, QD
     Route: 048

REACTIONS (12)
  - Hyponatraemia [Recovered/Resolved]
  - Upper respiratory tract infection [Recovered/Resolved]
  - Lung infection [Recovered/Resolved with Sequelae]
  - Dyspnoea [Recovered/Resolved]
  - Dental caries [Recovered/Resolved]
  - Pelvic pain [Recovered/Resolved]
  - Tendonitis [Recovered/Resolved]
  - Bronchospasm [Recovered/Resolved]
  - Chronic obstructive pulmonary disease [Recovered/Resolved]
  - Lung infection [Recovered/Resolved with Sequelae]
  - Lung infection [Recovered/Resolved]
  - Neck pain [Recovered/Resolved]

NARRATIVE: CASE EVENT DATE: 2018
